FAERS Safety Report 23996251 (Version 3)
Quarter: 2024Q4

REPORT INFORMATION
  Report Type: Spontaneous
  Country: US (occurrence: US)
  Receive Date: 20240620
  Receipt Date: 20241023
  Transmission Date: 20250115
  Serious: No
  Sender: BRISTOL-MYERS SQUIBB COMPANY
  Company Number: US-BRISTOL-MYERS SQUIBB COMPANY-2024-099431

PATIENT
  Age: 62 Year
  Sex: Female

DRUGS (4)
  1. ZEPOSIA [Suspect]
     Active Substance: OZANIMOD HYDROCHLORIDE
     Indication: Multiple sclerosis
     Dosage: 1 TIME A DAY FOR 4 DAYS(DAY 1-4)
     Route: 048
     Dates: start: 20240617
  2. ZEPOSIA [Suspect]
     Active Substance: OZANIMOD HYDROCHLORIDE
     Indication: Osteoporosis
     Dosage: 1 TIME A DAY FOR NEXT THREE DAYS(DAY 5-7)
     Route: 048
     Dates: start: 20240617
  3. ZEPOSIA [Suspect]
     Active Substance: OZANIMOD HYDROCHLORIDE
     Route: 048
     Dates: start: 20240617
  4. ZEPOSIA [Suspect]
     Active Substance: OZANIMOD HYDROCHLORIDE
     Route: 048
     Dates: start: 202406

REACTIONS (4)
  - Dizziness postural [Unknown]
  - Pyrexia [Unknown]
  - Chills [Unknown]
  - Sinus congestion [Unknown]

NARRATIVE: CASE EVENT DATE: 20240617
